FAERS Safety Report 5831709-0 (Version None)
Quarter: 2008Q3

REPORT INFORMATION
  Report Type: 
  Country: None (occurrence: None)
  Receive Date: 20080803
  Receipt Date: 20080722
  Transmission Date: 20090109
  Serious: Yes (Disabling)
  Sender: FDA-Public Use
  Company Number: PHHO1999DE04812

PATIENT
  Sex: Male
  Weight: 78 kg

DRUGS (3)
  1. SANDIMMUNE [Suspect]
     Indication: TRANSPLANT
  2. RAD 666 RAD+ [Suspect]
     Indication: RENAL TRANSPLANT
     Dosage: 1.5 MG, BID
     Route: 048
     Dates: start: 19990512
  3. PREDNISOLONE [Concomitant]

REACTIONS (3)
  - BONE MARROW OEDEMA [None]
  - BONE PAIN [None]
  - OEDEMA [None]
